FAERS Safety Report 6192127-1 (Version None)
Quarter: 2009Q2

REPORT INFORMATION
  Report Type: 
  Country: None (occurrence: None)
  Receive Date: 20090515
  Receipt Date: 20090504
  Transmission Date: 20091009
  Serious: Yes (Other)
  Sender: FDA-Public Use
  Company Number: US-PFIZER INC-2009203915

PATIENT
  Age: 31 Year
  Sex: Male

DRUGS (2)
  1. SERTRALINE HCL [Suspect]
     Indication: OBSESSIVE-COMPULSIVE DISORDER
     Dosage: 50 MG, UNK
  2. SERTRALINE HCL [Suspect]
     Indication: IRRITABILITY

REACTIONS (2)
  - APATHY [None]
  - OBSESSIVE THOUGHTS [None]
